FAERS Safety Report 4699254-6 (Version None)
Quarter: 2005Q2

REPORT INFORMATION
  Report Type: 
  Country: None (occurrence: None)
  Receive Date: 20050623
  Receipt Date: 20050623
  Transmission Date: 20051028
  Serious: Yes (Hospitalization)
  Sender: FDA-Public Use
  Company Number: None

PATIENT
  Sex: Female
  Weight: 69.8539 kg

DRUGS (4)
  1. CYTOXAN [Suspect]
  2. FLUDARA [Suspect]
  3. NOVANTRONE [Suspect]
  4. RITUXAN [Concomitant]

REACTIONS (6)
  - CHILLS [None]
  - COUGH [None]
  - NEUTROPENIA [None]
  - PNEUMONIA [None]
  - PYREXIA [None]
  - SEPSIS [None]
